FAERS Safety Report 19732656 (Version 3)
Quarter: 2021Q4

REPORT INFORMATION
  Report Type: Spontaneous
  Country: JP (occurrence: JP)
  Receive Date: 20210823
  Receipt Date: 20211123
  Transmission Date: 20220303
  Serious: Yes (Hospitalization, Other)
  Sender: FDA-Public Use
  Company Number: JP-UCBJ-CD202107376UCBPHAPROD

PATIENT
  Age: 32 Year
  Sex: Female
  Weight: 60 kg

DRUGS (16)
  1. VIMPAT [Suspect]
     Active Substance: LACOSAMIDE
     Indication: Partial seizures
     Dosage: 200 MILLIGRAM, 2X/DAY (BID)
     Route: 048
     Dates: start: 20191108
  2. VIMPAT [Suspect]
     Active Substance: LACOSAMIDE
     Indication: Epilepsy
     Dosage: 300 MG DAILY
     Route: 048
     Dates: start: 202105, end: 2021
  3. VIMPAT [Suspect]
     Active Substance: LACOSAMIDE
     Dosage: 400 MG A DAY
     Route: 048
     Dates: start: 202106
  4. RISPERIDONE [Suspect]
     Active Substance: RISPERIDONE
     Indication: Product used for unknown indication
     Dosage: UNK
     Route: 048
     Dates: start: 201910
  5. RISPERIDONE [Suspect]
     Active Substance: RISPERIDONE
     Dosage: 6 MG DAILY
     Route: 048
     Dates: end: 202105
  6. RISPERIDONE [Suspect]
     Active Substance: RISPERIDONE
     Dosage: 4 MG DAILY
     Route: 048
     Dates: start: 202105
  7. OLANZAPINE [Suspect]
     Active Substance: OLANZAPINE
     Indication: Product used for unknown indication
     Dosage: UNK
     Route: 048
     Dates: start: 202012
  8. OLANZAPINE [Suspect]
     Active Substance: OLANZAPINE
     Dosage: 20MG DAILY
     Route: 048
     Dates: end: 202105
  9. OLANZAPINE [Suspect]
     Active Substance: OLANZAPINE
     Dosage: 10MG DAILY
     Route: 048
     Dates: start: 202105
  10. TEGRETOL [Suspect]
     Active Substance: CARBAMAZEPINE
     Indication: Epilepsy
     Dosage: 250 MILLIGRAM, 2X/DAY (BID)
     Route: 048
     Dates: start: 20200902, end: 20201111
  11. BLONANSERIN [Suspect]
     Active Substance: BLONANSERIN
     Indication: Epileptic psychosis
     Dosage: 8 MILLIGRAM, 2X/DAY (BID)
     Route: 048
     Dates: start: 20200625, end: 20201021
  12. LEXAPRO [Suspect]
     Active Substance: ESCITALOPRAM OXALATE
     Indication: Epileptic psychosis
     Dosage: 10 MG DAILY
     Route: 048
     Dates: start: 20200923, end: 20201118
  13. AKINETON [Concomitant]
     Active Substance: BIPERIDEN HYDROCHLORIDE
     Indication: Product used for unknown indication
     Dosage: UNK
     Route: 048
  14. MYSTAN [Concomitant]
     Active Substance: CLOBAZAM
     Indication: Partial seizures
     Dosage: UNK
     Route: 048
  15. MYSTAN [Concomitant]
     Active Substance: CLOBAZAM
     Indication: Epilepsy
  16. LEVETIRACETAM [Concomitant]
     Active Substance: LEVETIRACETAM
     Indication: Epilepsy
     Dosage: 1500 MILLIGRAM, 2X/DAY (BID)
     Route: 048
     Dates: start: 20191113, end: 20201120

REACTIONS (3)
  - Epileptic psychosis [Recovered/Resolved]
  - Dystonia [Not Recovered/Not Resolved]
  - Drug ineffective [Unknown]

NARRATIVE: CASE EVENT DATE: 20200701
